FAERS Safety Report 21547774 (Version 1)
Quarter: 2022Q4

REPORT INFORMATION
  Report Type: Spontaneous
  Country: US (occurrence: None)
  Receive Date: 20221102
  Receipt Date: 20221102
  Transmission Date: 20230113
  Serious: No
  Sender: FDA-Public Use
  Company Number: None

PATIENT
  Sex: Male

DRUGS (1)
  1. OMNITROPE [Suspect]
     Active Substance: SOMATROPIN
     Indication: Short stature
     Dosage: OTHER FREQUENCY : NIGHTLY;?
     Route: 058
     Dates: start: 202210

REACTIONS (3)
  - Device defective [None]
  - Product dose omission issue [None]
  - Product leakage [None]
